FAERS Safety Report 11456102 (Version 1)
Quarter: 2015Q3

REPORT INFORMATION
  Report Type: Spontaneous
  Country: IT (occurrence: IT)
  Receive Date: 20150903
  Receipt Date: 20150903
  Transmission Date: 20151125
  Serious: Yes (Hospitalization)
  Sender: FDA-Public Use
  Company Number: IT-TEVA-588621ACC

PATIENT
  Age: 50 Year
  Sex: Female

DRUGS (2)
  1. ETILTOX - 200 MG COMPRESSE [Concomitant]
     Indication: ALCOHOL ABUSE
  2. CITALOPRAM [Suspect]
     Active Substance: CITALOPRAM HYDROBROMIDE
     Indication: OVERDOSE
     Dosage: 400 MG TOTAL
     Route: 048

REACTIONS (3)
  - Overdose [Recovering/Resolving]
  - Intentional self-injury [Recovering/Resolving]
  - Confusional state [Recovering/Resolving]

NARRATIVE: CASE EVENT DATE: 20150708
